FAERS Safety Report 10229861 (Version 2)
Quarter: 2014Q3

REPORT INFORMATION
  Report Type: Report from Study
  Country: DE (occurrence: DE)
  Receive Date: 20140611
  Receipt Date: 20140826
  Transmission Date: 20150326
  Serious: Yes (Hospitalization)
  Sender: FDA-Public Use
  Company Number: DE-ROCHE-1415671

PATIENT
  Age: 71 Year
  Sex: Female
  Weight: 103.7 kg

DRUGS (5)
  1. BEVACIZUMAB [Suspect]
     Active Substance: BEVACIZUMAB
     Indication: OVARIAN CANCER
     Dosage: Q 14 DAY?DATE OF LAST DOSE PRIOR TO SAE:19/MAY/2014
     Route: 042
     Dates: start: 20140213
  2. DOXORUBICIN [Suspect]
     Active Substance: DOXORUBICIN
     Indication: OVARIAN CANCER
     Dosage: Q 28 DAYS ?DATE OF LAST DOSE PRIOR TO SAE:19/MAY/2014
     Route: 042
     Dates: start: 20140213
  3. DOXORUBICIN [Suspect]
     Active Substance: DOXORUBICIN
     Route: 042
  4. CARBOPLATIN. [Suspect]
     Active Substance: CARBOPLATIN
     Indication: OVARIAN CANCER
     Dosage: DOSAGE: AUC 5 Q 28 DAYS ?DATE OF LAST DOSE PRIOR TO SAE:19/MAY/2014
     Route: 042
     Dates: start: 20140213
  5. CARBOPLATIN. [Suspect]
     Active Substance: CARBOPLATIN
     Dosage: DOSAGE: AUC 4
     Route: 042

REACTIONS (1)
  - Palmar-plantar erythrodysaesthesia syndrome [Recovered/Resolved]

NARRATIVE: CASE EVENT DATE: 20140604
